FAERS Safety Report 26155353 (Version 1)
Quarter: 2025Q4

REPORT INFORMATION
  Report Type: Spontaneous
  Country: IR (occurrence: IR)
  Receive Date: 20251215
  Receipt Date: 20251215
  Transmission Date: 20260118
  Serious: Yes (Disabling, Other)
  Sender: SOLARIS PHARMA CORPORATION
  Company Number: IR-SPC-000783

PATIENT
  Age: 41 Year
  Sex: Female

DRUGS (2)
  1. CLINDAMYCIN [Suspect]
     Active Substance: CLINDAMYCIN
     Indication: Eye infection toxoplasmal
     Dosage: 1 MG/0.1 ML
     Route: 065
  2. DEXAMETHASONE [Suspect]
     Active Substance: DEXAMETHASONE
     Indication: Eye infection toxoplasmal
     Dosage: 0.4 MG/0.1 ML
     Route: 065

REACTIONS (3)
  - Product use in unapproved indication [Unknown]
  - Macular ischaemia [Unknown]
  - Blindness [Unknown]
